FAERS Safety Report 10656841 (Version 1)
Quarter: 2014Q4

REPORT INFORMATION
  Report Type: Spontaneous
  Country: US (occurrence: US)
  Receive Date: 20141217
  Receipt Date: 20141217
  Transmission Date: 20150529
  Serious: Yes (Other)
  Sender: FDA-Public Use
  Company Number: US-PFIZER INC-2014342894

PATIENT
  Age: 20 Year
  Sex: Female
  Weight: 59 kg

DRUGS (3)
  1. DEPO-PROVERA [Suspect]
     Active Substance: MEDROXYPROGESTERONE ACETATE
     Dosage: 150 MG/ML, EVERY 12 WEEKS
     Route: 030
     Dates: end: 201202
  2. DEPO-PROVERA [Suspect]
     Active Substance: MEDROXYPROGESTERONE ACETATE
     Indication: CONTRACEPTION
     Dosage: 150 MG/ML, EVERY 12 WEEKS
     Route: 030
     Dates: start: 201007
  3. DEPO-PROVERA [Suspect]
     Active Substance: MEDROXYPROGESTERONE ACETATE
     Indication: DYSMENORRHOEA
     Dosage: 150 MG/ML, EVERY 12 WEEKS
     Route: 030

REACTIONS (2)
  - Glaucoma [Unknown]
  - Peritonsillar abscess [Unknown]

NARRATIVE: CASE EVENT DATE: 2011
